FAERS Safety Report 10554011 (Version 1)
Quarter: 2014Q4

REPORT INFORMATION
  Report Type: Spontaneous
  Country: US (occurrence: None)
  Receive Date: 20141028
  Receipt Date: 20141028
  Transmission Date: 20150529
  Serious: Yes (Hospitalization, Other)
  Sender: FDA-Public Use
  Company Number: 201410087

PATIENT
  Age: 55 Year
  Sex: Male

DRUGS (2)
  1. TESTIM [Suspect]
     Active Substance: TESTOSTERONE
     Indication: BLOOD TESTOSTERONE DECREASED
     Route: 062
     Dates: start: 2007, end: 20140701
  2. DEPO-TESTOSTERONE [Suspect]
     Active Substance: TESTOSTERONE CYPIONATE
     Indication: BLOOD TESTOSTERONE DECREASED
     Dates: start: 19951204, end: 19981203

REACTIONS (7)
  - Myocardial infarction [None]
  - Economic problem [None]
  - Pain in extremity [None]
  - Anhedonia [None]
  - Chest pain [None]
  - Deep vein thrombosis [None]
  - Fear [None]

NARRATIVE: CASE EVENT DATE: 19980509
